FAERS Safety Report 5243175-7 (Version None)
Quarter: 2007Q1

REPORT INFORMATION
  Report Type: 
  Country: None (occurrence: None)
  Receive Date: 20070215
  Receipt Date: 20070201
  Transmission Date: 20070707
  Serious: Yes (Other)
  Sender: FDA-Public Use
  Company Number: B0457703A

PATIENT
  Age: 51 Year
  Sex: Male

DRUGS (4)
  1. ALKERAN [Suspect]
  2. CARMUSTINE [Suspect]
  3. ETOPOSIDE [Suspect]
  4. CYTARABINE [Suspect]

REACTIONS (2)
  - CYTOMEGALOVIRUS ENTERITIS [None]
  - GASTROINTESTINAL INFLAMMATION [None]
